FAERS Safety Report 26190245 (Version 2)
Quarter: 2025Q4

REPORT INFORMATION
  Report Type: Spontaneous
  Country: US (occurrence: US)
  Receive Date: 20251223
  Receipt Date: 20251223
  Transmission Date: 20260118
  Serious: Yes (Other)
  Sender: ROCHE
  Company Number: US-ROCHE-10000463433

PATIENT
  Sex: Female

DRUGS (3)
  1. CELLCEPT [Suspect]
     Active Substance: MYCOPHENOLATE MOFETIL
     Indication: Lupus nephritis
  2. DAPSONE [Concomitant]
     Active Substance: DAPSONE
  3. PREDNISONE [Concomitant]
     Active Substance: PREDNISONE
     Dosage: 60

REACTIONS (10)
  - Pulmonary embolism [Unknown]
  - Thyroid disorder [Unknown]
  - Back disorder [Unknown]
  - Pharyngeal inflammation [Unknown]
  - Pain [Unknown]
  - Renal disorder [Unknown]
  - Protein urine [Unknown]
  - Tremor [Unknown]
  - Dyspnoea [Unknown]
  - Off label use [Unknown]
